FAERS Safety Report 6425939-7 (Version None)
Quarter: 2009Q4

REPORT INFORMATION
  Report Type: 
  Country: None (occurrence: None)
  Receive Date: 20091103
  Receipt Date: 20091103
  Transmission Date: 20100525
  Serious: Yes (Other)
  Sender: FDA-Public Use
  Company Number: None

PATIENT
  Age: 40 Year
  Sex: Female
  Weight: 70.7611 kg

DRUGS (3)
  1. LUPRON DEPOT [Suspect]
     Indication: ENDOMETRIOSIS
     Dosage: 7.5MG, MONTHLY, IM
     Route: 030
     Dates: start: 20060110, end: 20060610
  2. LUPRON DEPOT [Suspect]
     Indication: INFERTILITY
     Dosage: 7.5MG, MONTHLY, IM
     Route: 030
     Dates: start: 20060110, end: 20060610
  3. LUPRON DEPOT [Suspect]
     Indication: UTERINE FIBROSIS
     Dosage: 7.5MG, MONTHLY, IM
     Route: 030
     Dates: start: 20060110, end: 20060610

REACTIONS (18)
  - ABDOMINAL DISTENSION [None]
  - ACTIVITIES OF DAILY LIVING IMPAIRED [None]
  - ARTHRALGIA [None]
  - BONE PAIN [None]
  - DEPRESSION [None]
  - DRUG INEFFECTIVE [None]
  - ECONOMIC PROBLEM [None]
  - HEADACHE [None]
  - HYPERTHYROIDISM [None]
  - HYPOTHYROIDISM [None]
  - IMPAIRED WORK ABILITY [None]
  - INFLUENZA LIKE ILLNESS [None]
  - INSOMNIA [None]
  - MEMORY IMPAIRMENT [None]
  - MUSCULOSKELETAL STIFFNESS [None]
  - MYALGIA [None]
  - QUALITY OF LIFE DECREASED [None]
  - WEIGHT INCREASED [None]
